FAERS Safety Report 7982404-3 (Version None)
Quarter: 2011Q4

REPORT INFORMATION
  Report Type: 
  Country: None (occurrence: None)
  Receive Date: 20111214
  Receipt Date: 20111214
  Transmission Date: 20120403
  Serious: Yes (Other)
  Sender: FDA-Public Use
  Company Number: None

PATIENT
  Age: 83 Year
  Sex: Female

DRUGS (2)
  1. REVLIMID [Suspect]
     Indication: MULTIPLE MYELOMA
     Dosage: 5MG QOD ORALLY
     Route: 048
  2. REVLIMID [Suspect]

REACTIONS (5)
  - HYPERLIPIDAEMIA [None]
  - SQUAMOUS CELL CARCINOMA [None]
  - HYPERTENSION [None]
  - ATRIAL FIBRILLATION [None]
  - ASTHMA [None]
